FAERS Safety Report 9818553 (Version 3)
Quarter: 2014Q2

REPORT INFORMATION
  Report Type: Spontaneous
  Country: US (occurrence: US)
  Receive Date: 20140115
  Receipt Date: 20140416
  Transmission Date: 20141212
  Serious: Yes (Hospitalization, Other)
  Sender: FDA-Public Use
  Company Number: US-B.I. PHARMACEUTICALS,INC./RIDGEFIELD-2014-BI-01597BP

PATIENT
  Sex: Male

DRUGS (6)
  1. PRAMIPEXOLE [Suspect]
     Indication: PARKINSON^S DISEASE
     Dosage: 0.5 G
     Route: 048
     Dates: start: 2010
  2. IBUPROFEN [Concomitant]
     Indication: SCIATICA
     Dosage: PRN
     Route: 048
  3. LOPRESSOR [Concomitant]
     Indication: HYPERTENSION
     Dosage: UNK
     Route: 048
  4. ASPIRIN [Concomitant]
     Route: 065
  5. TRAMADOL [Concomitant]
     Route: 065
  6. LIPITOR [Concomitant]
     Dosage: 10 MG
     Route: 065

REACTIONS (2)
  - Coronary artery occlusion [Recovered/Resolved]
  - Coronary artery disease [Unknown]
